FAERS Safety Report 15423270 (Version 4)
Quarter: 2020Q4

REPORT INFORMATION
  Report Type: Report from Study
  Country: US (occurrence: US)
  Receive Date: 20180925
  Receipt Date: 20201015
  Transmission Date: 20210113
  Serious: Yes (Death)
  Sender: FDA-Public Use
  Company Number: US-ROCHE-2184615

PATIENT
  Age: 58 Year
  Sex: Female
  Weight: 85.9 kg

DRUGS (26)
  1. LEUCOVORIN CALCIUM. [Suspect]
     Active Substance: LEUCOVORIN CALCIUM
     Indication: COLORECTAL CANCER METASTATIC
     Dosage: OVER 2 HOURS ON DAY 1 (CYCLE 1)?OVER 2 HOURS ON DAY 1 (CYCLE 2)?ON 29/AUG/2018, SHE RECEIVED LAST DO
     Route: 042
     Dates: start: 20180124, end: 20180829
  2. TIZANIDINE. [Concomitant]
     Active Substance: TIZANIDINE
  3. METFORMIN [Concomitant]
     Active Substance: METFORMIN HYDROCHLORIDE
  4. DICYCLOMINE [Concomitant]
     Active Substance: DICYCLOMINE HYDROCHLORIDE
  5. ATEZOLIZUMAB. [Suspect]
     Active Substance: ATEZOLIZUMAB
     Indication: COLORECTAL CANCER METASTATIC
     Dosage: 60 MINUTES ON DAY 1 (CYCLE 1), 30 MINUTES ON DAY 1 (CYCLE 2)?ON 29/AUG/2018, RECEIVED LAST DOSE OF A
     Route: 042
     Dates: start: 20180124, end: 20180829
  6. 5-FLUOROURACIL [Suspect]
     Active Substance: FLUOROURACIL
     Indication: COLORECTAL CANCER METASTATIC
     Dosage: OVER 2-4 MINUTES ON DAY 1, FOLLOWED BY 2400MG/M2 CONTINUOUS INFUSION OVER 46-48 HOURS STARTING DAY 1
     Route: 042
     Dates: start: 20180124, end: 20180831
  7. ASPIRIN. [Concomitant]
     Active Substance: ASPIRIN
  8. ACETAMINOPHEN. [Concomitant]
     Active Substance: ACETAMINOPHEN
  9. FUROSEMIDE. [Concomitant]
     Active Substance: FUROSEMIDE
  10. MAGNESIUM OXIDE. [Concomitant]
     Active Substance: MAGNESIUM OXIDE
  11. HYDROCORTISONE. [Concomitant]
     Active Substance: HYDROCORTISONE
  12. BEVACIZUMAB. [Suspect]
     Active Substance: BEVACIZUMAB
     Indication: COLORECTAL CANCER METASTATIC
     Dosage: OVER 90 MINUTES ON DAY 1 (CYCLE 1)?OVER 60 MINUTES ON DAY 1 (CYCLE 2)?ON 29/AUG/2018, RECEIVED LAST
     Route: 042
     Dates: start: 20180124, end: 20180829
  13. OXALIPLATIN. [Suspect]
     Active Substance: OXALIPLATIN
     Indication: COLORECTAL CANCER METASTATIC
     Dosage: OVER 2 HOURS ON DAY 1 (CYCLE 1)?OVER 2 HOURS ON DAY 1 (CYCLE 2)?ON 30/MAY/2018, LAST DOSE OF OXALIPL
     Route: 042
     Dates: start: 20180124, end: 20180530
  14. ATORVASTATIN [Concomitant]
     Active Substance: ATORVASTATIN
  15. LAMOTRIGINE. [Concomitant]
     Active Substance: LAMOTRIGINE
  16. OXYCODONE [Concomitant]
     Active Substance: OXYCODONE
  17. LOSARTAN. [Concomitant]
     Active Substance: LOSARTAN
  18. CLONAZEPAM. [Concomitant]
     Active Substance: CLONAZEPAM
  19. DRONABINOL. [Concomitant]
     Active Substance: DRONABINOL
  20. DIPHENHYDRAMINE. [Concomitant]
     Active Substance: DIPHENHYDRAMINE
  21. MORPHINE [Concomitant]
     Active Substance: MORPHINE
  22. ROPINIROLE. [Concomitant]
     Active Substance: ROPINIROLE
  23. INSULIN [Concomitant]
     Active Substance: INSULIN NOS
  24. DIPHENOXYLATE/ATROPINE [Concomitant]
     Active Substance: ATROPINE\DIPHENOXYLATE
  25. FLUOXETINE [Concomitant]
     Active Substance: FLUOXETINE HYDROCHLORIDE
  26. PROMETHAZINE WITH CODEINE [Concomitant]
     Active Substance: CODEINE PHOSPHATE\PROMETHAZINE HYDROCHLORIDE

REACTIONS (1)
  - Death [Fatal]

NARRATIVE: CASE EVENT DATE: 20180906
